FAERS Safety Report 8817681 (Version 2)
Quarter: 2012Q4

REPORT INFORMATION
  Report Type: 
  Country: IT (occurrence: IT)
  Receive Date: 20121001
  Receipt Date: 20121129
  Transmission Date: 20130627
  Serious: Yes (Disabling)
  Sender: FDA-Public Use
  Company Number: PHHY2012IT084473

PATIENT
  Age: 59 Year
  Sex: Female

DRUGS (1)
  1. ZOMETA [Suspect]
     Indication: METASTASIS
     Dosage: 4 mg, UNK
     Route: 042
     Dates: start: 20070901, end: 20120701

REACTIONS (1)
  - Osteonecrosis [Not Recovered/Not Resolved]
